FAERS Safety Report 7729513 (Version 3)
Quarter: 2014Q1

REPORT INFORMATION
  Report Type: Spontaneous
  Country: DE (occurrence: DE)
  Receive Date: 20101222
  Receipt Date: 20140110
  Transmission Date: 20141002
  Serious: Yes (Life-Threatening, Other)
  Sender: FDA-Public Use
  Company Number: PHHY2010DE86195

PATIENT
  Age: 7 Year
  Sex: Female

DRUGS (17)
  1. METHOTREXATE [Suspect]
     Indication: ACUTE MYELOID LEUKAEMIA
     Dosage: 12 MG, UNK
     Route: 037
  2. METHOTREXATE [Suspect]
     Dosage: 1000 MG/M2, UNK
     Route: 042
  3. PREDNISONE [Suspect]
     Dosage: 60 MG/M2, UNK
     Route: 048
  4. VINCRISTINE [Suspect]
     Dosage: 1.5 MG/M2, UNK
  5. CYTARABINE [Suspect]
     Dosage: 75 MG/M2- 50 PERCENT, 38 MG/M2
  6. DEXAMETHASONE [Suspect]
     Dosage: 10 MG/M2, UNK
  7. CYCLOPHOSPHAMIDE [Suspect]
     Dosage: 1000 MG/M2, UNK
  8. CYCLOPHOSPHAMIDE [Suspect]
     Dosage: 500 MG/M2, UNK
  9. MERCAPTOPURINE [Suspect]
     Dosage: 60 MG/M2, 50 PERCENT, 30 MG/M2
  10. MERCAPTOPURINE [Suspect]
     Dosage: 25 MG/M2, UNK
     Route: 048
  11. TIOGUANINE [Suspect]
     Dosage: 60 MG/M2, UNK
  12. DAUNORUBICIN [Suspect]
     Dosage: 30 MG/M2, 50 PERCENT, 15MG/M2
  13. DAUNORUBICIN [Suspect]
     Dosage: 20 MG/M2, UNK
  14. ASPARAGINASE [Suspect]
     Dosage: 5000 IE/M2, 50 PERCENT, 2500 IE/M2
  15. ASPARAGINASE [Suspect]
     Dosage: 10 000 IE/M2
  16. ANTIFUNGALS [Suspect]
  17. DOXORUBICIN [Suspect]
     Dosage: 20 MG/M2, UNK

REACTIONS (12)
  - Candida sepsis [Unknown]
  - Candida pneumonia [Not Recovered/Not Resolved]
  - Central nervous system lesion [Unknown]
  - Subclavian vein thrombosis [Recovering/Resolving]
  - Encephalitis [Unknown]
  - Pneumonia [Unknown]
  - Convulsion [Unknown]
  - Respiratory tract infection [Recovered/Resolved]
  - Bronchitis [Unknown]
  - Mutism [Recovered/Resolved]
  - Neutropenia [Unknown]
  - Speech disorder [Unknown]
